FAERS Safety Report 20323209 (Version 2)
Quarter: 2022Q1

REPORT INFORMATION
  Report Type: Spontaneous
  Country: US (occurrence: US)
  Receive Date: 20220111
  Receipt Date: 20220113
  Transmission Date: 20220423
  Serious: Yes (Other)
  Sender: FDA-Public Use
  Company Number: US-TEVA-2022-US-1997071

PATIENT
  Age: 76 Year
  Sex: Female
  Weight: 117.93 kg

DRUGS (1)
  1. PROAIR HFA [Suspect]
     Active Substance: ALBUTEROL SULFATE
     Indication: Asthma
     Dosage: 2 PUFFS 3-4 TIMES A DAY,ALBUTEROL SULFATE 90 MCG/DOSE
     Route: 065
     Dates: start: 2021

REACTIONS (22)
  - Atrial fibrillation [Unknown]
  - Pulmonary hypertension [Unknown]
  - Productive cough [Not Recovered/Not Resolved]
  - Sputum discoloured [Not Recovered/Not Resolved]
  - Rash macular [Not Recovered/Not Resolved]
  - Pharyngitis [Not Recovered/Not Resolved]
  - Laryngitis [Not Recovered/Not Resolved]
  - Tachycardia [Recovered/Resolved]
  - Headache [Recovered/Resolved]
  - Neck pain [Recovered/Resolved]
  - Back pain [Recovered/Resolved]
  - Arthralgia [Recovered/Resolved]
  - Abdominal pain upper [Recovered/Resolved]
  - Dizziness [Recovered/Resolved]
  - Rhinitis [Recovered/Resolved]
  - Hypertension [Recovered/Resolved]
  - Dyspnoea [Unknown]
  - Product label issue [Unknown]
  - Drug ineffective [Unknown]
  - Extra dose administered [Unknown]
  - Overdose [Unknown]
  - Palpitations [Unknown]

NARRATIVE: CASE EVENT DATE: 20220101
